FAERS Safety Report 9444899 (Version 1)
Quarter: 2013Q3

REPORT INFORMATION
  Report Type: Spontaneous
  Country: SE (occurrence: SE)
  Receive Date: 20130807
  Receipt Date: 20130807
  Transmission Date: 20140515
  Serious: Yes (Hospitalization)
  Sender: FDA-Public Use
  Company Number: SE-SANOFI-AVENTIS-2013SA076566

PATIENT
  Age: 21 Year
  Sex: Female

DRUGS (6)
  1. STILNOCT [Suspect]
     Indication: PRODUCT USED FOR UNKNOWN INDICATION
     Route: 048
  2. PROPAVAN [Suspect]
     Indication: PRODUCT USED FOR UNKNOWN INDICATION
     Route: 048
  3. IMOVANE [Suspect]
     Indication: PRODUCT USED FOR UNKNOWN INDICATION
     Dosage: STRENGTH : 7.5 MG
     Route: 048
  4. ZOLPIDEM TARTRATE [Concomitant]
  5. NAPROXEN [Concomitant]
  6. MIANSERIN [Concomitant]

REACTIONS (1)
  - Toxicity to various agents [Recovered/Resolved]
